FAERS Safety Report 12466931 (Version 2)
Quarter: 2016Q3

REPORT INFORMATION
  Report Type: Report from Study
  Country: US (occurrence: US)
  Receive Date: 20160615
  Receipt Date: 20160822
  Transmission Date: 20161109
  Serious: Yes (Hospitalization, Disabling, Other)
  Sender: FDA-Public Use
  Company Number: PHEH2016US014343

PATIENT
  Age: 70 Year
  Sex: Female
  Weight: 80.73 kg

DRUGS (1)
  1. RECLAST [Suspect]
     Active Substance: ZOLEDRONIC ACID
     Indication: OSTEOARTHRITIS
     Dosage: 1 DF, (1 SINGLE DOSE)
     Route: 042
     Dates: start: 20130516, end: 20130516

REACTIONS (4)
  - Product use issue [Unknown]
  - Fall [Unknown]
  - Arthralgia [Unknown]
  - Femur fracture [Recovered/Resolved with Sequelae]

NARRATIVE: CASE EVENT DATE: 201507
